APPROVED DRUG PRODUCT: HYDROXYPROGESTERONE CAPROATE
Active Ingredient: HYDROXYPROGESTERONE CAPROATE
Strength: 1250MG/5ML (250MG/ML)
Dosage Form/Route: SOLUTION;INTRAMUSCULAR
Application: A200271 | Product #001
Applicant: ASPEN GLOBAL INC
Approved: Aug 24, 2015 | RLD: No | RS: No | Type: DISCN